FAERS Safety Report 25417275 (Version 2)
Quarter: 2025Q3

REPORT INFORMATION
  Report Type: Spontaneous
  Country: EU (occurrence: EU)
  Receive Date: 20250610
  Receipt Date: 20250718
  Transmission Date: 20251021
  Serious: Yes (Hospitalization, Other)
  Sender: AZURITY PHARMACEUTICALS
  Company Number: None

PATIENT
  Age: 65 Year
  Sex: Male

DRUGS (3)
  1. TRIPTORELIN [Suspect]
     Active Substance: TRIPTORELIN
     Indication: Prostate cancer
     Route: 030
     Dates: start: 2022, end: 20241104
  2. ZYTIGA [Suspect]
     Active Substance: ABIRATERONE ACETATE
     Indication: Prostate cancer
     Dosage: 1 GRAM, DAILY
     Route: 048
     Dates: start: 2022, end: 20241104
  3. PREDNISOLONE SODIUM METAZOATE [Suspect]
     Active Substance: PREDNISOLONE SODIUM METAZOATE
     Indication: Prostate cancer
     Dosage: 5 MILLIGRAM, DAILY
     Route: 048
     Dates: start: 2022, end: 20241104

REACTIONS (2)
  - Hypertension [Recovered/Resolved]
  - Cerebral haemorrhage [Recovered/Resolved with Sequelae]

NARRATIVE: CASE EVENT DATE: 20241104
